FAERS Safety Report 19062015 (Version 3)
Quarter: 2021Q2

REPORT INFORMATION
  Report Type: Report from Study
  Country: MX (occurrence: MX)
  Receive Date: 20210326
  Receipt Date: 20210502
  Transmission Date: 20210717
  Serious: Yes (Death, Hospitalization)
  Sender: FDA-Public Use
  Company Number: NVSC2020MX340348

PATIENT
  Age: 55 Year
  Sex: Female
  Weight: 60 kg

DRUGS (6)
  1. ACETYLSALICYLIC ACID [Concomitant]
     Active Substance: ASPIRIN
     Indication: CARDIAC FIBROMA
     Dosage: 0.5 DF, Q12H (STARTED 20 YEARS AGO)
     Route: 048
     Dates: end: 20210124
  2. ENTRESTO [Suspect]
     Active Substance: SACUBITRIL\VALSARTAN
     Indication: CARDIAC FIBROMA
     Dosage: 1 DF, UNKNOWN (DOSE 100 MG, FREQUENCY AS ? TABLET IN THE MORNING AND ? TABLET AT NIGHT)
     Route: 048
     Dates: start: 202012
  3. ENTRESTO [Suspect]
     Active Substance: SACUBITRIL\VALSARTAN
     Dosage: 0.5 DF ((100 MG), Q12H
     Route: 048
     Dates: end: 20210124
  4. SILDENAFIL. [Concomitant]
     Active Substance: SILDENAFIL
     Indication: HYPERTENSION
     Dosage: 0.5 DF (?), QD (STARTED 3 YEARS AGO)
     Route: 048
     Dates: end: 20210124
  5. ENTRESTO [Suspect]
     Active Substance: SACUBITRIL\VALSARTAN
     Indication: CARDIAC DISORDER
     Dosage: 0.5 DF, BID (1/2 IN MORNING AND 1/2 IN EVENING
     Route: 048
     Dates: start: 202011
  6. METFORMIN [Concomitant]
     Active Substance: METFORMIN HYDROCHLORIDE
     Indication: DIABETES MELLITUS
     Dosage: 0.5 DF (850 MG), QD (STARTED 1 YEAR AGO)
     Route: 048
     Dates: end: 20210124

REACTIONS (4)
  - Incorrect dose administered [Unknown]
  - Product use in unapproved indication [Unknown]
  - COVID-19 [Fatal]
  - Wrong technique in product usage process [Unknown]

NARRATIVE: CASE EVENT DATE: 20201220
